FAERS Safety Report 9913070 (Version 1)
Quarter: 2014Q1

REPORT INFORMATION
  Report Type: Spontaneous
  Country: IT (occurrence: IT)
  Receive Date: 20140220
  Receipt Date: 20140220
  Transmission Date: 20141002
  Serious: Yes (Hospitalization)
  Sender: FDA-Public Use
  Company Number: IT-ASTRAZENECA-2014SE11342

PATIENT
  Age: 17075 Day
  Sex: Male

DRUGS (3)
  1. SEROQUEL [Suspect]
     Indication: INTENTIONAL OVERDOSE
     Route: 048
     Dates: start: 20140130, end: 20140130
  2. RIVOTRIL [Suspect]
     Indication: INTENTIONAL OVERDOSE
     Dosage: 1 DOSAGE FORM DAILY, 2.5 MG/ML ORAL DROPS
     Route: 048
     Dates: start: 20140130, end: 20140130
  3. VALIUM [Suspect]
     Indication: INTENTIONAL OVERDOSE
     Dosage: 1 DOSAGE FORM DAILY, 5 MG/ML ORAL DROPS
     Route: 048
     Dates: start: 20140130, end: 20140130

REACTIONS (4)
  - Intentional overdose [Recovered/Resolved]
  - Bradyphrenia [Recovered/Resolved]
  - Sopor [Recovered/Resolved]
  - Bradykinesia [Recovered/Resolved]
